FAERS Safety Report 8698521 (Version 4)
Quarter: 2012Q4

REPORT INFORMATION
  Report Type: Report from Study
  Country: US (occurrence: US)
  Receive Date: 20120802
  Receipt Date: 20121022
  Transmission Date: 20130627
  Serious: Yes (Death, Other)
  Sender: FDA-Public Use
  Company Number: US-ASTELLAS-2012US006180

PATIENT
  Age: 66 None
  Sex: Female
  Weight: 48 kg

DRUGS (20)
  1. ERLOTINIB TABLET [Suspect]
     Indication: LUNG CARCINOMA CELL TYPE UNSPECIFIED STAGE 0
     Dosage: 150 mg, UID/QD
     Route: 048
     Dates: start: 20120620
  2. LOTION [Concomitant]
     Indication: SKIN EXFOLIATION
     Dosage: UNK
     Route: 061
  3. TYLENOL /00020001/ [Concomitant]
     Indication: PRODUCT USED FOR UNKNOWN INDICATION
     Dosage: 650 mg, prn, q4hrs
     Route: 048
  4. ASPIRIN [Concomitant]
     Indication: PRODUCT USED FOR UNKNOWN INDICATION
     Dosage: 81 mg, UID/QD
     Route: 048
  5. MULTAQ [Concomitant]
     Indication: PRODUCT USED FOR UNKNOWN INDICATION
     Dosage: 400 mg, bid
     Route: 048
  6. NORCO [Concomitant]
     Indication: PRODUCT USED FOR UNKNOWN INDICATION
     Dosage: 5 mg, prn, q4hrs
     Route: 048
  7. LORAZEPAM [Concomitant]
     Indication: ANXIETY
     Dosage: 0.25 mg, bid, prn
     Route: 048
  8. COUMADIN                           /00014802/ [Concomitant]
     Indication: PRODUCT USED FOR UNKNOWN INDICATION
     Dosage: 2.5 mg, qhs
     Route: 048
  9. MULTIVITAMINS, PLAIN [Concomitant]
     Indication: PRODUCT USED FOR UNKNOWN INDICATION
     Dosage: 1 DF, UID/QD
     Route: 048
  10. HEPARIN [Concomitant]
     Indication: PRODUCT USED FOR UNKNOWN INDICATION
     Dosage: 500 U, Unknown/D
     Route: 042
  11. POTASSIUM CHLORIDE [Concomitant]
     Indication: PRODUCT USED FOR UNKNOWN INDICATION
     Dosage: 20 mEq, UID/QD
     Route: 048
  12. POTASSIUM CHLORIDE [Concomitant]
     Dosage: 40 mEq, Unknown/D
     Route: 048
  13. SLOW-MAG [Concomitant]
     Indication: PRODUCT USED FOR UNKNOWN INDICATION
     Dosage: 64 mg, UID/QD
     Route: 048
  14. DILACOR                            /00014302/ [Concomitant]
     Indication: PRODUCT USED FOR UNKNOWN INDICATION
     Dosage: 120 mg, UID/QD
     Route: 048
  15. LASIX                              /00032601/ [Concomitant]
     Indication: PRODUCT USED FOR UNKNOWN INDICATION
     Dosage: 20 mg, UID/QD
     Route: 065
  16. AMBIEN [Concomitant]
     Indication: PRODUCT USED FOR UNKNOWN INDICATION
     Dosage: 2.5 mg, UID/QD
     Route: 048
  17. VITAMIN K                          /00032401/ [Concomitant]
     Indication: INTERNATIONAL NORMALISED RATIO INCREASED
     Dosage: UNK
     Route: 065
  18. AZITHROMYCIN [Concomitant]
     Indication: PRODUCT USED FOR UNKNOWN INDICATION
     Dosage: UNK
     Route: 065
  19. ROCEPHIN [Concomitant]
     Indication: PRODUCT USED FOR UNKNOWN INDICATION
     Dosage: UNK
     Route: 065
  20. DIPHENHYDRAMINE [Concomitant]
     Indication: SLEEP DISORDER
     Dosage: 25 mg, prn
     Route: 042

REACTIONS (12)
  - Wrong technique in drug usage process [Unknown]
  - Malignant neoplasm progression [Fatal]
  - Gastric haemorrhage [Unknown]
  - Diarrhoea haemorrhagic [Unknown]
  - Hospice care [Unknown]
  - Abdominal pain upper [Unknown]
  - Skin exfoliation [Unknown]
  - Fatigue [Unknown]
  - Nausea [Unknown]
  - Anxiety [Unknown]
  - Oedema peripheral [Unknown]
  - Asthenia [Unknown]
